FAERS Safety Report 7076531-5 (Version None)
Quarter: 2010Q4

REPORT INFORMATION
  Report Type: 
  Country: None (occurrence: None)
  Receive Date: 20101029
  Receipt Date: 20101029
  Transmission Date: 20110411
  Serious: Yes (Other)
  Sender: FDA-Public Use
  Company Number: None

PATIENT
  Age: 23 Year
  Sex: Female

DRUGS (1)
  1. DEPO-PROVERA [Suspect]
     Indication: CONTRACEPTION
     Dosage: 104 MG SQ X 1 SUBCUTANEOUS
     Route: 058
     Dates: start: 20100719

REACTIONS (1)
  - PREGNANCY WITH INJECTABLE CONTRACEPTIVE [None]
